FAERS Safety Report 18308213 (Version 6)
Quarter: 2021Q3

REPORT INFORMATION
  Report Type: Spontaneous
  Country: US (occurrence: US)
  Receive Date: 20200924
  Receipt Date: 20210723
  Transmission Date: 20211014
  Serious: Yes (Other)
  Sender: FDA-Public Use
  Company Number: US-PFIZER INC-2017009845

PATIENT
  Age: 63 Year
  Sex: Female

DRUGS (17)
  1. GLIMEPIRIDE. [Concomitant]
     Active Substance: GLIMEPIRIDE
     Indication: DIABETES MELLITUS
     Dosage: 1 MG, 2X/DAY
     Route: 048
     Dates: start: 20150408
  2. LOSARTAN POTASSIUM. [Concomitant]
     Active Substance: LOSARTAN POTASSIUM
     Dosage: 100 MG, 1X/DAY [TAKE 1 TABLET DAILY BEFORE BREAKFAST ]
     Route: 048
     Dates: start: 20151021
  3. AEROSOL SPITZNER [Concomitant]
     Active Substance: CAMPHOR\HERBALS
     Indication: DYSPNOEA
     Dosage: UNK UNK, AS NEEDED(2?3 ML PLUS CONT (60 PLAS COUNTS))
     Dates: start: 20160725
  4. PIOGLITAZONE HCL [Concomitant]
     Active Substance: PIOGLITAZONE
     Dosage: 45 MG, 1X/DAY
     Route: 048
     Dates: start: 20161117
  5. ADVAIR HFA [Concomitant]
     Active Substance: FLUTICASONE PROPIONATE\SALMETEROL XINAFOATE
     Dosage: 1 DF, 2X/DAY [DISKUS 250?50 MCG/BREATH ACTIVATED LNHALE 1 PUFF TWICE DAILY, RINSE MOUTH AFTER USE]
     Dates: start: 20121205
  6. ATORVASTATIN CALCIUM. [Concomitant]
     Active Substance: ATORVASTATIN CALCIUM
     Indication: BLOOD CHOLESTEROL ABNORMAL
     Dosage: 40 MG, DAILY(40 MG ORAL TABLET TAKE ONE TABLET BY MOUTH DAILY )
     Route: 048
     Dates: start: 20160722
  7. FUROSEMIDE. [Concomitant]
     Active Substance: FUROSEMIDE
     Indication: OEDEMA
     Dosage: 80 MG, 2X/DAY
     Route: 048
     Dates: start: 20121205
  8. METFORMIN HCL [Concomitant]
     Active Substance: METFORMIN HYDROCHLORIDE
     Indication: DIABETES MELLITUS
     Dosage: 1000 MG, 2X/DAY
     Route: 048
     Dates: start: 20121205
  9. LYRICA [Suspect]
     Active Substance: PREGABALIN
     Indication: NEUROPATHY PERIPHERAL
     Dosage: 300 MG, 2X/DAY
     Route: 048
     Dates: start: 20121205
  10. LYRICA [Suspect]
     Active Substance: PREGABALIN
     Indication: PAIN IN EXTREMITY
     Dosage: 300 MG, DAILY
  11. AMLODIPINE BESYLATE. [Concomitant]
     Active Substance: AMLODIPINE BESYLATE
     Dosage: 10 MG, DAILY(10 MG ORAL TABLET TAKE 1 TABLET BY MOUTH DAILY )
     Route: 048
     Dates: start: 20121205
  12. POTASSIUM CHLORIDE. [Concomitant]
     Active Substance: POTASSIUM CHLORIDE
     Dosage: 10 MEQ, DAILY
     Route: 048
     Dates: start: 20121205
  13. ACETAMINOPHEN;HYDROCODONE [Concomitant]
     Active Substance: ACETAMINOPHEN\HYDROCODONE
     Indication: PAIN
     Dosage: 1 DF, AS NEEDED [10?325 MG, TAKE 1 TABLET EVERY 8 HOURS AS NEEDED]
     Route: 048
     Dates: start: 20140207
  14. GABAPENTIN. [Concomitant]
     Active Substance: GABAPENTIN
     Indication: NEUROPATHY PERIPHERAL
     Dosage: 1200 MG, 3X/DAY (CHANGE FROM 800 MG)
     Route: 048
     Dates: start: 20130322
  15. AMITRIPTYLINE HCL [Concomitant]
     Active Substance: AMITRIPTYLINE
     Indication: NEURALGIA
     Dosage: 100 MG, 1X/DAY(100 MG ORAL TABLET TAKE 1 TABLET PO AT 7 PM )
     Route: 048
     Dates: start: 20130225
  16. VENTOLIN HFA [Concomitant]
     Active Substance: ALBUTEROL SULFATE
     Dosage: UNK, AS NEEDED (INHALE 1?2 PUFFS EVERY 4?6 HOURS AS NEEDED AND AS DIRECTED)
     Dates: start: 20121205
  17. ALBUTEROL SULFATE. [Concomitant]
     Active Substance: ALBUTEROL SULFATE
     Indication: DYSPNOEA
     Dosage: UNK UNK, AS NEEDED [ALBUTEROL SULFATE (2:5 MG/3ML) 0.083% INHALATION NCBULIZATION SOLUTION USE 1 VI]
     Dates: start: 20160725

REACTIONS (5)
  - Back pain [Unknown]
  - Cataract [Recovering/Resolving]
  - Hypoacusis [Unknown]
  - Drug ineffective [Unknown]
  - Mental impairment [Unknown]
